APPROVED DRUG PRODUCT: MICORT-HC
Active Ingredient: HYDROCORTISONE ACETATE
Strength: 2%
Dosage Form/Route: CREAM;TOPICAL
Application: A040398 | Product #001
Applicant: LEGACY PHARMA INC
Approved: Mar 29, 2002 | RLD: No | RS: No | Type: DISCN